FAERS Safety Report 6760891-6 (Version None)
Quarter: 2010Q2

REPORT INFORMATION
  Report Type: 
  Country: None (occurrence: None)
  Receive Date: 20100608
  Receipt Date: 20100531
  Transmission Date: 20101027
  Serious: Yes (Hospitalization, Other)
  Sender: FDA-Public Use
  Company Number: US-ROCHE-707158

PATIENT
  Age: 64 Year
  Sex: Male

DRUGS (7)
  1. MYCOPHENOLATE MOFETIL [Suspect]
     Route: 065
  2. VALGANCICLOVIR HCL [Suspect]
     Indication: INFECTION PROPHYLAXIS
     Route: 065
  3. SULFAMETHOXAZOLE AND TRIMETHOPRIM [Suspect]
     Indication: INFECTION PROPHYLAXIS
     Route: 065
  4. CAMPATH [Suspect]
     Route: 065
  5. TACROLIMUS [Suspect]
     Route: 065
  6. PREDNISONE [Suspect]
     Route: 065
  7. VORICONAZOLE [Suspect]
     Indication: INFECTION PROPHYLAXIS
     Route: 065

REACTIONS (10)
  - ACUTE PRERENAL FAILURE [None]
  - ALPHA HAEMOLYTIC STREPTOCOCCAL INFECTION [None]
  - ASCITES [None]
  - GRAVITATIONAL OEDEMA [None]
  - PERICARDIAL EFFUSION [None]
  - PERICARDITIS MYCOPLASMAL [None]
  - PLEURAL DISORDER [None]
  - PLEURAL EFFUSION [None]
  - PSEUDOMONAS INFECTION [None]
  - RESPIRATORY FAILURE [None]
